FAERS Safety Report 15056543 (Version 1)
Quarter: 2018Q2

REPORT INFORMATION
  Report Type: Spontaneous
  Country: US (occurrence: US)
  Receive Date: 20180623
  Receipt Date: 20180623
  Transmission Date: 20180711
  Serious: No
  Sender: FDA-Public Use
  Company Number: US-GLENMARK PHARMACEUTICALS-2018GMK034008

PATIENT

DRUGS (1)
  1. PRAMIPEXOLE DIHYDROCHLORIDE. [Suspect]
     Active Substance: PRAMIPEXOLE DIHYDROCHLORIDE
     Indication: PARKINSON^S DISEASE
     Dosage: 1 DF, TID
     Route: 065
     Dates: start: 20180326

REACTIONS (6)
  - Pain [Unknown]
  - Pain in extremity [Unknown]
  - Depressed mood [Unknown]
  - Tremor [Recovered/Resolved]
  - Hallucination [Unknown]
  - Arthralgia [Unknown]

NARRATIVE: CASE EVENT DATE: 20180326
